FAERS Safety Report 4592649-0 (Version None)
Quarter: 2005Q1

REPORT INFORMATION
  Report Type: 
  Country: None (occurrence: None)
  Receive Date: 20050222
  Receipt Date: 20041210
  Transmission Date: 20050727
  Serious: Yes (Other)
  Sender: FDA-Public Use
  Company Number: 2004100535

PATIENT
  Age: 46 Year
  Sex: Female
  Weight: 186.4284 kg

DRUGS (2)
  1. BEXTRA [Suspect]
     Indication: ILL-DEFINED DISORDER
     Dosage: ORAL
     Route: 048
     Dates: start: 20041001, end: 20041101
  2. ROFECOXIB [Concomitant]

REACTIONS (8)
  - DIFFICULTY IN WALKING [None]
  - EYE DISCHARGE [None]
  - EYE DISORDER [None]
  - FLUID RETENTION [None]
  - OEDEMA PERIPHERAL [None]
  - SKIN NECROSIS [None]
  - SKIN ULCER [None]
  - ULCER [None]
